FAERS Safety Report 5018261-7 (Version None)
Quarter: 2006Q2

REPORT INFORMATION
  Report Type: 
  Country: None (occurrence: None)
  Receive Date: 20060530
  Receipt Date: 20060520
  Transmission Date: 20061013
  Serious: Yes (Life-Threatening)
  Sender: FDA-Public Use
  Company Number: 219908

PATIENT
  Age: 72 Year
  Sex: Female

DRUGS (4)
  1. ACTIVASE [Suspect]
     Indication: ISCHAEMIC STROKE
     Dosage: 61.2 MG, INTRAVENOUS
     Route: 042
     Dates: start: 20051124
  2. CITICOLINE (CITICOLINE) [Suspect]
     Indication: ISCHAEMIC STROKE
     Dosage: 1G, INTRAVENOUS
     Route: 042
     Dates: start: 20051124
  3. CLOPIDOGREL (CLOPIDOGREL BISULFATE) [Concomitant]
  4. ANTIHYPERTENSIVE NOS [Concomitant]

REACTIONS (4)
  - ANAPHYLACTIC REACTION [None]
  - CEREBRAL HAEMORRHAGE [None]
  - RESPIRATORY FAILURE [None]
  - STRIDOR [None]
